FAERS Safety Report 7365793-2 (Version None)
Quarter: 2011Q1

REPORT INFORMATION
  Report Type: 
  Country: None (occurrence: None)
  Receive Date: 20110322
  Receipt Date: 20110308
  Transmission Date: 20110831
  Serious: Yes (Hospitalization)
  Sender: FDA-Public Use
  Company Number: AU-JNJFOC-20110304353

PATIENT
  Age: 29 Year
  Sex: Male

DRUGS (1)
  1. OXYMETAZOLINE HCL [Suspect]
     Indication: UPPER AIRWAY OBSTRUCTION
     Dosage: USING A BOTTLE EACH WEEK
     Route: 045

REACTIONS (2)
  - NASAL MUCOSAL DISORDER [None]
  - NASAL TURBINATE HYPERTROPHY [None]
